FAERS Safety Report 10126320 (Version 3)
Quarter: 2014Q3

REPORT INFORMATION
  Report Type: Spontaneous
  Country: IT (occurrence: IT)
  Receive Date: 20140427
  Receipt Date: 20140724
  Transmission Date: 20150326
  Serious: Yes (Hospitalization, Other)
  Sender: FDA-Public Use
  Company Number: IT-BRISTOL-MYERS SQUIBB COMPANY-20650677

PATIENT
  Age: 88 Year
  Sex: Male
  Weight: 50 kg

DRUGS (3)
  1. COUMADIN [Suspect]
     Active Substance: WARFARIN SODIUM
     Indication: ATRIAL FIBRILLATION
     Dosage: 1UNIT?LAST DOSE 24FEB2014
     Route: 048
     Dates: start: 20110101
  2. SUPRADYN [Concomitant]
     Active Substance: ASCORBIC ACID\MINERALS\VITAMINS
     Dosage: TABS
  3. LANOXIN [Concomitant]
     Active Substance: DIGOXIN
     Indication: ATRIAL FIBRILLATION
     Dosage: 1UNIT
     Route: 048
     Dates: start: 20110101, end: 20140227

REACTIONS (4)
  - Cardiac failure [Unknown]
  - Rectal haemorrhage [Recovering/Resolving]
  - Femur fracture [Recovered/Resolved]
  - International normalised ratio increased [Recovering/Resolving]

NARRATIVE: CASE EVENT DATE: 20110428
